FAERS Safety Report 8906686 (Version 1)
Quarter: 2012Q4

REPORT INFORMATION
  Report Type: 
  Country: US (occurrence: US)
  Receive Date: 20121113
  Receipt Date: 20121113
  Transmission Date: 20130627
  Serious: No
  Sender: FDA-Public Use
  Company Number: US-AMGEN-USASP2012011092

PATIENT
  Sex: Female
  Weight: 83.9 kg

DRUGS (9)
  1. ENBREL [Suspect]
     Indication: PRODUCT USED FOR UNKNOWN INDICATION
     Dosage: 50 mg, qwk
     Route: 058
  2. OXYBUTYNIN [Concomitant]
     Dosage: 15 mg, UNK
  3. OMEPRAZOLE [Concomitant]
     Dosage: 20 mg, UNK
  4. ETODOLAC [Concomitant]
     Dosage: 500 mg, UNK
  5. CITRACAL                           /00751520/ [Concomitant]
  6. ATENOLOL CHLORTHALIDONE [Concomitant]
  7. MAGNESIUM [Concomitant]
     Dosage: 400 mg, UNK
  8. VITAMIN D /00107901/ [Concomitant]
     Dosage: UNK
  9. CHLORIDE [Concomitant]

REACTIONS (1)
  - Headache [Unknown]
